FAERS Safety Report 21085226 (Version 2)
Quarter: 2022Q3

REPORT INFORMATION
  Report Type: Spontaneous
  Country: JP (occurrence: JP)
  Receive Date: 20220714
  Receipt Date: 20220907
  Transmission Date: 20221027
  Serious: Yes (Death, Other)
  Sender: FDA-Public Use
  Company Number: JP-BRISTOL-MYERS SQUIBB COMPANY-2022-071081

PATIENT
  Age: 77 Year
  Sex: Male
  Weight: 63 kg

DRUGS (35)
  1. REVLIMID [Suspect]
     Active Substance: LENALIDOMIDE
     Indication: Plasma cell myeloma
     Route: 041
     Dates: start: 20170928, end: 20180814
  2. EMPLICITI [Suspect]
     Active Substance: ELOTUZUMAB
     Indication: Product used for unknown indication
     Route: 065
     Dates: start: 20180417, end: 20180605
  3. EMPLICITI [Suspect]
     Active Substance: ELOTUZUMAB
     Route: 065
     Dates: start: 20180619, end: 20180717
  4. EMPLICITI [Suspect]
     Active Substance: ELOTUZUMAB
     Route: 065
     Dates: start: 20190409, end: 20190604
  5. EMPLICITI [Suspect]
     Active Substance: ELOTUZUMAB
     Route: 065
     Dates: start: 20190618, end: 20201124
  6. EMPLICITI [Suspect]
     Active Substance: ELOTUZUMAB
     Route: 065
     Dates: start: 20210511, end: 20210629
  7. EMPLICITI [Suspect]
     Active Substance: ELOTUZUMAB
     Route: 065
     Dates: start: 20210706, end: 20210831
  8. POMALYST [Suspect]
     Active Substance: POMALIDOMIDE
     Indication: Product used for unknown indication
     Dosage: AFTER BREAKFAST (ADMINISTER 3-TIMES ON/ONCE OFF)
     Route: 065
  9. VELCADE [Suspect]
     Active Substance: BORTEZOMIB
     Indication: Plasma cell myeloma
     Route: 041
     Dates: start: 20170802, end: 20180301
  10. VELCADE [Suspect]
     Active Substance: BORTEZOMIB
     Route: 065
     Dates: start: 20210928, end: 20211130
  11. VELCADE [Suspect]
     Active Substance: BORTEZOMIB
     Route: 065
     Dates: start: 20211207, end: 20220107
  12. DARZALEX [Suspect]
     Active Substance: DARATUMUMAB
     Indication: Plasma cell myeloma
     Route: 041
     Dates: start: 20180731, end: 20181016
  13. DARZALEX [Suspect]
     Active Substance: DARATUMUMAB
     Route: 041
     Dates: start: 20181113, end: 20181127
  14. DARZALEX [Suspect]
     Active Substance: DARATUMUMAB
     Route: 041
     Dates: start: 20201203, end: 20210126
  15. DARZALEX [Suspect]
     Active Substance: DARATUMUMAB
     Route: 041
     Dates: start: 20210202, end: 20210413
  16. DARATUMUMAB [Concomitant]
     Active Substance: DARATUMUMAB
     Indication: Product used for unknown indication
     Dosage: THRICE IN A MONTH
     Route: 065
     Dates: start: 20210928, end: 20211130
  17. DARATUMUMAB [Concomitant]
     Active Substance: DARATUMUMAB
     Route: 065
     Dates: start: 20211207, end: 20220107
  18. ISATUXIMAB [Concomitant]
     Active Substance: ISATUXIMAB
     Indication: Product used for unknown indication
     Route: 065
     Dates: start: 20220125, end: 20220125
  19. ISATUXIMAB [Concomitant]
     Active Substance: ISATUXIMAB
     Route: 065
     Dates: start: 20220201, end: 20220201
  20. ENTECAVIR [Concomitant]
     Active Substance: ENTECAVIR
     Indication: Product used for unknown indication
     Route: 065
     Dates: start: 20220209
  21. CALONAL [Concomitant]
     Active Substance: ACETAMINOPHEN
     Indication: Product used for unknown indication
     Dosage: 1500MG (AFTER EACH MEAL)/DAY
     Route: 065
  22. LYRICA [Concomitant]
     Active Substance: PREGABALIN
     Indication: Product used for unknown indication
     Dosage: 150MG(AFTER BREAKFAST AND BEFORE SLEEP)/DAY
     Route: 065
  23. TIZANIDINE [Concomitant]
     Active Substance: TIZANIDINE
     Indication: Product used for unknown indication
     Dosage: 3MG(AFTER EACH MEAL)/DAY
     Route: 065
  24. LOXOPROFEN SODIUM DIHYDRATE [Concomitant]
     Active Substance: LOXOPROFEN SODIUM DIHYDRATE
     Indication: Product used for unknown indication
     Dosage: 3MG(AFTER EACH MEAL)/DAY
     Route: 065
  25. LOXOPROFEN SODIUM DIHYDRATE [Concomitant]
     Active Substance: LOXOPROFEN SODIUM DIHYDRATE
     Route: 065
  26. NAFTOPIDIL [Concomitant]
     Active Substance: NAFTOPIDIL
     Indication: Product used for unknown indication
     Dosage: AFTER DINNER
     Route: 065
  27. TADALAFIL [Concomitant]
     Active Substance: TADALAFIL
     Indication: Product used for unknown indication
     Dosage: AFTER DINNER
     Route: 065
  28. XARELTO OD [Concomitant]
     Indication: Product used for unknown indication
     Dosage: AFTER BREAKFAST
     Route: 065
  29. REBAMIPIDE [Concomitant]
     Active Substance: REBAMIPIDE
     Indication: Product used for unknown indication
     Dosage: 200MG (AFTER BREAKFAST AND DINNER) / DAY
     Route: 065
  30. ELDECALCITOL [Concomitant]
     Active Substance: ELDECALCITOL
     Indication: Product used for unknown indication
     Dosage: AFTER BREAKFAST
     Route: 065
  31. FEBUXOSTAT [Concomitant]
     Active Substance: FEBUXOSTAT
     Indication: Product used for unknown indication
     Dosage: AFTER BREAKFAST
     Route: 065
  32. LANSOPRAZOLE [Concomitant]
     Active Substance: LANSOPRAZOLE
     Indication: Product used for unknown indication
     Dosage: AFTER DINNER
     Route: 065
  33. SPIRIVA [Concomitant]
     Active Substance: TIOTROPIUM BROMIDE MONOHYDRATE
     Indication: Product used for unknown indication
     Dosage: 2 INHALATIONS AT A TIME
     Route: 055
  34. DIQUAFOSOL TETRASODIUM [Concomitant]
     Active Substance: DIQUAFOSOL TETRASODIUM
     Indication: Product used for unknown indication
     Dosage: 2-3 TIMES A DAY WITH BOTH EYES
     Route: 047
  35. HYALURONATE SODIUM [Concomitant]
     Active Substance: HYALURONATE SODIUM
     Indication: Product used for unknown indication
     Dosage: AS-NEEDED USE
     Route: 065

REACTIONS (2)
  - Hepatic function abnormal [Fatal]
  - Hepatitis B reactivation [Unknown]

NARRATIVE: CASE EVENT DATE: 20201201
